FAERS Safety Report 7026316-0 (Version None)
Quarter: 2010Q4

REPORT INFORMATION
  Report Type: 
  Country: None (occurrence: None)
  Receive Date: 20101004
  Receipt Date: 20100922
  Transmission Date: 20110411
  Serious: Yes (Hospitalization, Other)
  Sender: FDA-Public Use
  Company Number: GB-PFIZER INC-2010117257

PATIENT
  Age: 48 Year
  Sex: Female

DRUGS (9)
  1. CABERGOLINE [Suspect]
     Indication: ON AND OFF PHENOMENON
     Dosage: UNK
  2. CABERGOLINE [Suspect]
     Indication: PARKINSON'S DISEASE
  3. ENTACAPONE [Suspect]
     Indication: ON AND OFF PHENOMENON
     Dosage: UNK
  4. ENTACAPONE [Suspect]
     Indication: PARKINSON'S DISEASE
  5. LEVODOPA [Suspect]
     Indication: PARKINSON'S DISEASE
     Dosage: 1200 MG, DAY
  6. LEVODOPA [Suspect]
     Dosage: 300 MG, DAY
  7. PERGOLIDE [Suspect]
     Indication: ON AND OFF PHENOMENON
     Dosage: 3.5 MG, 1X/DAY
  8. PERGOLIDE [Suspect]
     Indication: PARKINSON'S DISEASE
  9. ROPINIROLE [Suspect]
     Indication: PARKINSON'S DISEASE
     Dosage: UNK

REACTIONS (1)
  - DOPAMINE DYSREGULATION SYNDROME [None]
